FAERS Safety Report 8517700-4 (Version None)
Quarter: 2012Q2

REPORT INFORMATION
  Report Type: 
  Country: None (occurrence: None)
  Receive Date: 20120406
  Receipt Date: 20101207
  Transmission Date: 20120825
  Serious: Yes (Other)
  Sender: FDA-Public Use
  Company Number: PHHY2010US62161

PATIENT
  Age: 75 Year
  Sex: Male
  Weight: 101.5 kg

DRUGS (3)
  1. NAPROXEN [Concomitant]
  2. TASIGNA [Suspect]
     Indication: CHRONIC MYELOID LEUKAEMIA
     Dosage: 400 MG, QD, ORAL, 400 MG, BID, ORAL
     Route: 048
     Dates: start: 20100603, end: 20100917
  3. TASIGNA [Suspect]
     Indication: CHRONIC MYELOID LEUKAEMIA
     Dosage: 400 MG, QD, ORAL, 400 MG, BID, ORAL
     Route: 048
     Dates: start: 20100512

REACTIONS (9)
  - NIGHT SWEATS [None]
  - HAEMATOCRIT DECREASED [None]
  - ABDOMINAL PAIN UPPER [None]
  - FATIGUE [None]
  - ANAEMIA [None]
  - PLATELET COUNT DECREASED [None]
  - RASH PAPULAR [None]
  - COUGH [None]
  - ASTHENIA [None]
